FAERS Safety Report 5218458-7 (Version None)
Quarter: 2007Q1

REPORT INFORMATION
  Report Type: 
  Country: None (occurrence: None)
  Receive Date: 20070122
  Receipt Date: 20070102
  Transmission Date: 20070707
  Serious: Yes (Other)
  Sender: FDA-Public Use
  Company Number: S07-GER-00294-01

PATIENT
  Age: 61 Year
  Sex: Female

DRUGS (11)
  1. ESCITALOPRAM OXALATE [Suspect]
     Dosage: 5 MG QD PO
     Route: 048
     Dates: start: 20040929, end: 20040930
  2. HUMALOG [Concomitant]
  3. RAMIPRIL [Concomitant]
  4. STANGYL (TRIMIPRAMINE MALEATE) [Concomitant]
  5. ACETYLSALICYLIC ACID SRT [Concomitant]
  6. COTRIM [Concomitant]
  7. LANTUS [Concomitant]
  8. AKINETON [Concomitant]
  9. FLUANXOL DEPOT (FLUPENTIXOL DECANOATE) [Concomitant]
  10. ZOCOR [Concomitant]
  11. LEVOTHYROXINE SODIUM [Concomitant]

REACTIONS (2)
  - CIRCULATORY COLLAPSE [None]
  - HYPOGLYCAEMIA [None]
